FAERS Safety Report 25519758 (Version 1)
Quarter: 2025Q3

REPORT INFORMATION
  Report Type: Spontaneous
  Country: US (occurrence: US)
  Receive Date: 20250704
  Receipt Date: 20250704
  Transmission Date: 20251021
  Serious: Yes (Other)
  Sender: ABBVIE
  Company Number: US-ABBVIE-6354157

PATIENT
  Age: 39 Year
  Sex: Female
  Weight: 59 kg

DRUGS (1)
  1. LATISSE [Suspect]
     Active Substance: BIMATOPROST
     Indication: Eyelash changes
     Dosage: 0.03 MILLIGRAM/MILLILITERS
     Route: 061
     Dates: start: 20250522, end: 20250615

REACTIONS (11)
  - Blindness [Recovered/Resolved]
  - Ocular hyperaemia [Recovered/Resolved]
  - Eye inflammation [Recovering/Resolving]
  - Vision blurred [Not Recovered/Not Resolved]
  - Visual impairment [Not Recovered/Not Resolved]
  - Eye pain [Recovering/Resolving]
  - Dry eye [Not Recovered/Not Resolved]
  - Ocular discomfort [Recovering/Resolving]
  - Corneal abrasion [Recovering/Resolving]
  - Swelling of eyelid [Recovering/Resolving]
  - Asthenopia [Recovering/Resolving]

NARRATIVE: CASE EVENT DATE: 20250615
